FAERS Safety Report 15242807 (Version 1)
Quarter: 2018Q3

REPORT INFORMATION
  Report Type: Spontaneous
  Country: US (occurrence: US)
  Receive Date: 20180806
  Receipt Date: 20180806
  Transmission Date: 20181010
  Serious: Yes (Other)
  Sender: FDA-Public Use
  Company Number: US-ROCHE-2160116

PATIENT
  Sex: Female
  Weight: 57.2 kg

DRUGS (13)
  1. TAXOL [Suspect]
     Active Substance: PACLITAXEL
     Indication: INVASIVE DUCTAL BREAST CARCINOMA
     Route: 065
     Dates: start: 20171220
  2. GABAPENTIN. [Concomitant]
     Active Substance: GABAPENTIN
  3. HERCEPTIN [Suspect]
     Active Substance: TRASTUZUMAB
     Indication: INVASIVE DUCTAL BREAST CARCINOMA
     Route: 065
     Dates: start: 20171220
  4. PRILOSEC [Concomitant]
     Active Substance: OMEPRAZOLE MAGNESIUM
  5. ASPIRIN. [Concomitant]
     Active Substance: ASPIRIN
  6. AZO (UNK INGREDIENTS) [Concomitant]
  7. JAKAFI [Suspect]
     Active Substance: RUXOLITINIB
     Indication: POLYCYTHAEMIA VERA
     Route: 048
     Dates: start: 20170207
  8. PROLIA [Concomitant]
     Active Substance: DENOSUMAB
     Route: 058
  9. PROPRANOLOL [Concomitant]
     Active Substance: PROPRANOLOL HYDROCHLORIDE
  10. JAKAFI [Suspect]
     Active Substance: RUXOLITINIB
     Route: 048
     Dates: start: 20171128
  11. TYLENOL [Concomitant]
     Active Substance: ACETAMINOPHEN
  12. PROCHLORPERAZINE MALEATE. [Concomitant]
     Active Substance: PROCHLORPERAZINE MALEATE
     Dosage: ONGOING:UNKNOWN
     Route: 065
     Dates: start: 20180606
  13. BENADRYL + DYCLONE MOUTHRINSE [Concomitant]

REACTIONS (7)
  - Metastases to lymph nodes [Unknown]
  - Skin ulcer [Recovered/Resolved]
  - Pain [Unknown]
  - Thrombocytosis [Unknown]
  - Infected skin ulcer [Unknown]
  - Toxicity to various agents [Unknown]
  - Seroma [Unknown]
